FAERS Safety Report 7530148-4 (Version None)
Quarter: 2011Q2

REPORT INFORMATION
  Report Type: 
  Country: None (occurrence: None)
  Receive Date: 20110607
  Receipt Date: 20110530
  Transmission Date: 20111010
  Serious: Yes (Other)
  Sender: FDA-Public Use
  Company Number: US-TEVA-284073USA

PATIENT
  Sex: Female

DRUGS (2)
  1. NORTREL 0.5/35-21 [Suspect]
     Indication: OVARIAN CYST RUPTURED
  2. NORTREL 0.5/35-21 [Suspect]
     Indication: MENSTRUATION IRREGULAR

REACTIONS (1)
  - ANAPHYLACTIC REACTION [None]
